FAERS Safety Report 8947649 (Version 2)
Quarter: 2013Q1

REPORT INFORMATION
  Report Type: Report from Study
  Country: JP (occurrence: JP)
  Receive Date: 20121205
  Receipt Date: 20130102
  Transmission Date: 20140127
  Serious: Yes (Hospitalization)
  Sender: FDA-Public Use
  Company Number: JP-ROCHE-1155467

PATIENT
  Age: 49 Year
  Sex: Male

DRUGS (10)
  1. TOCILIZUMAB [Suspect]
     Indication: RHEUMATOID ARTHRITIS
     Route: 041
     Dates: start: 20120406, end: 20121102
  2. METHOTREXATE [Concomitant]
     Indication: RHEUMATOID ARTHRITIS
     Route: 048
  3. AZULFIDINE-EN [Concomitant]
     Indication: RHEUMATOID ARTHRITIS
     Route: 048
  4. PREDNISOLONE [Concomitant]
     Indication: RHEUMATOID ARTHRITIS
     Route: 048
     Dates: end: 20120906
  5. PREDNISOLONE [Concomitant]
     Route: 048
     Dates: start: 20120907, end: 20121004
  6. PREDNISOLONE [Concomitant]
     Route: 048
     Dates: start: 20121005
  7. TAKEPRON [Concomitant]
     Indication: PROPHYLAXIS
     Dosage: DOSAGE IS UNCERTAIN.
     Route: 048
  8. LOXONIN [Concomitant]
     Indication: RHEUMATOID ARTHRITIS
     Route: 048
  9. FOLIAMIN [Concomitant]
     Indication: PROPHYLAXIS
     Dosage: DOSAGE IS UNCERTAIN.
     Route: 048
  10. CRESTOR [Concomitant]
     Indication: HYPERLIPIDAEMIA
     Dosage: DOSAGE IS UNCERTAIN.
     Route: 048
     Dates: start: 20121102

REACTIONS (1)
  - Cerebral infarction [Recovering/Resolving]
